FAERS Safety Report 23510595 (Version 1)
Quarter: 2024Q1

REPORT INFORMATION
  Report Type: Spontaneous
  Country: US (occurrence: US)
  Receive Date: 20240211
  Receipt Date: 20240211
  Transmission Date: 20240410
  Serious: No
  Sender: FDA-Public Use
  Company Number: US-AIMMUNE THERAPEUTICS, INC.-2023AIMT01147

PATIENT

DRUGS (6)
  1. PALFORZIA [Suspect]
     Active Substance: PEANUT
     Indication: Food allergy
     Dosage: IDE (0.5-6MG), ONCE
     Route: 048
     Dates: start: 20230717, end: 20230717
  2. PALFORZIA [Suspect]
     Active Substance: PEANUT
     Dosage: UNK UNK, 1X/DAY
     Route: 048
     Dates: start: 202307, end: 202307
  3. PALFORZIA [Suspect]
     Active Substance: PEANUT
     Dosage: UNK MG, ONCE, LAST DOSE PRIOR STOMACH ACHE
     Route: 048
     Dates: start: 202307, end: 202307
  4. PALFORZIA [Suspect]
     Active Substance: PEANUT
     Dosage: 40 MG, 1X/DAY
     Route: 048
     Dates: start: 20231005
  5. PALFORZIA [Suspect]
     Active Substance: PEANUT
     Dosage: 40 MG, ONCE, LAST DOSE PRIOR TO ITCHY THROAT
     Route: 048
  6. PALFORZIA [Suspect]
     Active Substance: PEANUT
     Dosage: 80 MG, 1X/DAY
     Route: 048
     Dates: start: 20231101

REACTIONS (2)
  - Abdominal pain upper [Not Recovered/Not Resolved]
  - Throat irritation [Not Recovered/Not Resolved]

NARRATIVE: CASE EVENT DATE: 20230724
